FAERS Safety Report 9516267 (Version 1)
Quarter: 2013Q1

REPORT INFORMATION
  Report Type: Spontaneous
  Country: US (occurrence: None)
  Receive Date: 20130305
  Receipt Date: 20130305
  Transmission Date: 20140127
  Serious: Yes (Other)
  Sender: FDA-Public Use
  Company Number: 163-21880-12113325

PATIENT
  Age: 74 Year
  Sex: Female

DRUGS (9)
  1. REVLIMID (LENALIDOMIDE) (15 MILLIGRAM, CAPSULES) [Suspect]
     Indication: PLASMA CELL MYELOMA
     Dosage: 15 MG, 21 IN 21 D, PO
     Route: 048
     Dates: start: 20110610, end: 2012
  2. AMBIEN (ZOLPIDEM TARTRATE) (UNKNOWN) [Concomitant]
  3. ASPIRIN (ACETYLSALICYLIC ACID) (UNKNOWN) (ACETYLSALICYLIC ACID) [Concomitant]
  4. CALCIUM 500 + D (CALCIUM D3 ^STADA^) (UNKNOWN) [Concomitant]
  5. CENTRUM SILVER (CENTRUM SILVER) (UNKNOWN) [Concomitant]
  6. COLACE (DOCUSATE SODIUM) (UNKNOWN) [Concomitant]
  7. DEXAMETHASONE (DEXAMETHASONE) (UNKNOWN) [Concomitant]
  8. GLUCOSAMINE 1500 COMPLEX (OSTEOGESIC PLUS) (UNKNOWN) [Concomitant]
  9. LUTEIN (XANTOFYL) (UNKNOWN) [Concomitant]

REACTIONS (1)
  - Plasma cell myeloma [None]
